FAERS Safety Report 6604040-3 (Version None)
Quarter: 2010Q1

REPORT INFORMATION
  Report Type: 
  Country: None (occurrence: None)
  Receive Date: 20100226
  Receipt Date: 20090422
  Transmission Date: 20100710
  Serious: No
  Sender: FDA-Public Use
  Company Number: A0780144A

PATIENT
  Age: 56 Year
  Sex: Female

DRUGS (4)
  1. LAMICTAL CD [Suspect]
     Indication: BIPOLAR DISORDER
     Dosage: 150MG PER DAY
     Route: 048
     Dates: start: 20080101
  2. LAMICTAL CD [Suspect]
     Indication: DRUG USE FOR UNKNOWN INDICATION
     Route: 048
     Dates: start: 20090201
  3. PRISTIQ [Concomitant]
  4. RITALIN [Concomitant]

REACTIONS (2)
  - NUCLEAR MAGNETIC RESONANCE IMAGING ABNORMAL [None]
  - TREMOR [None]
